FAERS Safety Report 4414275-6 (Version None)
Quarter: 2004Q3

REPORT INFORMATION
  Report Type: 
  Country: None (occurrence: None)
  Receive Date: 20040803
  Receipt Date: 20040729
  Transmission Date: 20050211
  Serious: Yes (Other)
  Sender: FDA-Public Use
  Company Number: PHBS2004JP10154

PATIENT
  Age: 34 Year
  Sex: Male

DRUGS (1)
  1. ZADITEN [Suspect]
     Indication: DERMATITIS ATOPIC
     Dosage: 1 MG, BID
     Route: 048
     Dates: start: 20040201, end: 20040101

REACTIONS (1)
  - LIVER DISORDER [None]
